FAERS Safety Report 5126194-0 (Version None)
Quarter: 2006Q4

REPORT INFORMATION
  Report Type: 
  Country: None (occurrence: None)
  Receive Date: 20061012
  Receipt Date: 20061005
  Transmission Date: 20070319
  Serious: Yes (Hospitalization)
  Sender: FDA-Public Use
  Company Number: TR-ROXANE LABORATORIES, INC-2006-BP-11732RO

PATIENT
  Age: 3 Year
  Sex: Male

DRUGS (7)
  1. MERCAPTOPURINE [Suspect]
     Indication: ACUTE LYMPHOCYTIC LEUKAEMIA (IN REMISSION)
     Route: 048
  2. METHOTREXATE [Suspect]
     Indication: ACUTE LYMPHOCYTIC LEUKAEMIA (IN REMISSION)
  3. METHOTREXATE [Suspect]
     Route: 048
  4. METHOTREXATE [Suspect]
  5. VINCRISTINE [Suspect]
     Indication: ACUTE LYMPHOCYTIC LEUKAEMIA (IN REMISSION)
  6. PREDNISOLONE [Suspect]
     Indication: ACUTE LYMPHOCYTIC LEUKAEMIA (IN REMISSION)
  7. LEUCOVORIN RESCUE [Concomitant]

REACTIONS (13)
  - ABDOMINAL PAIN [None]
  - AGITATION [None]
  - ALANINE AMINOTRANSFERASE INCREASED [None]
  - ASPARTATE AMINOTRANSFERASE INCREASED [None]
  - BLOOD GLUCOSE DECREASED [None]
  - BLOOD PH DECREASED [None]
  - FEBRILE NEUTROPENIA [None]
  - FOOD CRAVING [None]
  - HYPERHIDROSIS [None]
  - HYPOGLYCAEMIA [None]
  - KETONURIA [None]
  - NAUSEA [None]
  - TREMOR [None]
